FAERS Safety Report 10722530 (Version 1)
Quarter: 2015Q1

REPORT INFORMATION
  Report Type: Spontaneous
  Country: US (occurrence: US)
  Receive Date: 20150120
  Receipt Date: 20150120
  Transmission Date: 20150721
  Serious: Yes (Hospitalization, Other)
  Sender: FDA-Public Use
  Company Number: US-ROCHE-1519964

PATIENT
  Age: 50 Year
  Sex: Female

DRUGS (5)
  1. PACLITAXEL. [Concomitant]
     Active Substance: PACLITAXEL
  2. TRASTUZUMAB [Suspect]
     Active Substance: TRASTUZUMAB
     Indication: HER-2 POSITIVE BREAST CANCER
     Route: 065
     Dates: start: 201203, end: 201203
  3. TRASTUZUMAB [Suspect]
     Active Substance: TRASTUZUMAB
     Route: 065
     Dates: start: 201204, end: 201209
  4. TRASTUZUMAB [Suspect]
     Active Substance: TRASTUZUMAB
     Route: 065
     Dates: start: 201306, end: 201307
  5. TRASTUZUMAB [Suspect]
     Active Substance: TRASTUZUMAB
     Route: 065
     Dates: start: 201308

REACTIONS (2)
  - Cardiac failure acute [Recovered/Resolved]
  - Dermatitis allergic [Unknown]

NARRATIVE: CASE EVENT DATE: 201307
